FAERS Safety Report 5345588-1 (Version None)
Quarter: 2007Q2

REPORT INFORMATION
  Report Type: 
  Country: None (occurrence: None)
  Receive Date: 20070605
  Receipt Date: 20070216
  Transmission Date: 20071010
  Serious: No
  Sender: FDA-Public Use
  Company Number: US-ASTRAZENECA-2007UW03122

PATIENT
  Age: 60 Year
  Sex: Female

DRUGS (2)
  1. PRILOSEC [Suspect]
     Indication: HIATUS HERNIA
     Route: 048
  2. PROZAC [Concomitant]

REACTIONS (2)
  - APHTHOUS STOMATITIS [None]
  - GASTROOESOPHAGEAL REFLUX DISEASE [None]
